FAERS Safety Report 12948079 (Version 3)
Quarter: 2016Q4

REPORT INFORMATION
  Report Type: Spontaneous
  Country: US (occurrence: US)
  Receive Date: 20161117
  Receipt Date: 20161129
  Transmission Date: 20170207
  Serious: Yes (Other)
  Sender: FDA-Public Use
  Company Number: US-ROCHE-1855272

PATIENT
  Age: 61 Year
  Sex: Male
  Weight: 86.26 kg

DRUGS (3)
  1. KLONOPIN [Suspect]
     Active Substance: CLONAZEPAM
     Indication: SCHIZOPHRENIA
     Dosage: 1MG IN MORNING 1MG AT NIGHT ;ONGOING: NO
     Route: 048
     Dates: start: 20060808, end: 20160706
  2. KLONOPIN [Suspect]
     Active Substance: CLONAZEPAM
     Indication: ANXIETY DISORDER
     Route: 048
     Dates: start: 1996, end: 2016
  3. KLONOPIN [Suspect]
     Active Substance: CLONAZEPAM
     Indication: SPINA BIFIDA
     Dosage: 0.5MG IN MORNING AND 0.5MG AT NIGHT ;ONGOING: YES
     Route: 048
     Dates: start: 20160706

REACTIONS (9)
  - Anxiety [Not Recovered/Not Resolved]
  - Musculoskeletal stiffness [Unknown]
  - Suicidal ideation [Not Recovered/Not Resolved]
  - Panic attack [Not Recovered/Not Resolved]
  - Insomnia [Unknown]
  - Nervousness [Not Recovered/Not Resolved]
  - Depression [Not Recovered/Not Resolved]
  - Feeling abnormal [Unknown]
  - Headache [Unknown]

NARRATIVE: CASE EVENT DATE: 2015
